FAERS Safety Report 7594738-5 (Version None)
Quarter: 2011Q3

REPORT INFORMATION
  Report Type: 
  Country: None (occurrence: None)
  Receive Date: 20110707
  Receipt Date: 20110624
  Transmission Date: 20111222
  Serious: Yes (Other)
  Sender: FDA-Public Use
  Company Number: US-ENDO PHARMACEUTICALS INC.-OPIR20110038

PATIENT
  Sex: Female

DRUGS (1)
  1. OPANA [Suspect]
     Indication: PAIN
     Dosage: 5 MG
     Route: 048

REACTIONS (1)
  - DRUG DEPENDENCE [None]
